FAERS Safety Report 6086456-X (Version None)
Quarter: 2009Q1

REPORT INFORMATION
  Report Type: 
  Country: None (occurrence: None)
  Receive Date: 20090223
  Receipt Date: 20090210
  Transmission Date: 20090719
  Serious: Yes (Other)
  Sender: FDA-Public Use
  Company Number: PHHY2009DE05241

PATIENT
  Sex: Female

DRUGS (2)
  1. DIOVAN HCT [Suspect]
     Indication: HYPERTENSION
     Dosage: 160/25 MG DAILY
     Dates: start: 20080701, end: 20090101
  2. DIOVAN [Concomitant]
     Dosage: 160 MG
     Dates: start: 20090101

REACTIONS (7)
  - ANGIOPATHY [None]
  - EPISTAXIS [None]
  - PARAESTHESIA [None]
  - POLYNEUROPATHY [None]
  - RHINORRHOEA [None]
  - SINUSITIS [None]
  - VASCULITIS [None]
